FAERS Safety Report 8420539 (Version 2)
Quarter: 2015Q2

REPORT INFORMATION
  Report Type: Spontaneous
  Country: FR (occurrence: FR)
  Receive Date: 20120222
  Receipt Date: 20150605
  Transmission Date: 20150821
  Serious: Yes (Death, Life-Threatening, Hospitalization)
  Sender: FDA-Public Use
  Company Number: FR-NOVOPROD-344966

PATIENT
  Age: 66 Year
  Sex: Female

DRUGS (10)
  1. VERAPAMIL [Suspect]
     Active Substance: VERAPAMIL HYDROCHLORIDE
     Indication: PRODUCT USED FOR UNKNOWN INDICATION
     Dosage: 40 MG, TID
     Route: 048
  2. PREVISCAN (FLUINDIONE) [Suspect]
     Active Substance: FLUINDIONE
     Indication: PRODUCT USED FOR UNKNOWN INDICATION
     Dosage: DOSE OF 20 MG, (0.5 TABLET TWICE PER WEEK)
     Route: 048
  3. LEVOTHYROX [Suspect]
     Active Substance: LEVOTHYROXINE
     Dosage: 1.5/DAY
     Route: 048
  4. APROVEL [Suspect]
     Active Substance: IRBESARTAN
     Indication: PRODUCT USED FOR UNKNOWN INDICATION
     Dosage: 150 MG, QD
     Route: 048
  5. FLUDEX                             /00340101/ [Suspect]
     Active Substance: INDAPAMIDE
     Indication: PRODUCT USED FOR UNKNOWN INDICATION
     Dosage: 1.5 MG, QD
     Route: 048
  6. NOVONORM [Suspect]
     Active Substance: REPAGLINIDE
     Indication: TYPE 2 DIABETES MELLITUS
     Dosage: 0.5 MG, TID
     Route: 048
  7. LEVOTHYROX [Suspect]
     Active Substance: LEVOTHYROXINE
     Indication: PRODUCT USED FOR UNKNOWN INDICATION
     Dosage: 25 MICROG
     Route: 048
  8. HYDREA [Suspect]
     Active Substance: HYDROXYUREA
     Indication: EOSINOPHILIA
     Dosage: 500 MG, 6 TIMES PER DAY
     Route: 048
     Dates: start: 20111230, end: 20120104
  9. SYMBICORT [Suspect]
     Active Substance: BUDESONIDE\FORMOTEROL FUMARATE DIHYDRATE
     Indication: PRODUCT USED FOR UNKNOWN INDICATION
     Dosage: 200/6 MICROGRAM,  TWICE DAILY
     Route: 055
  10. INEGY [Suspect]
     Active Substance: EZETIMIBE\SIMVASTATIN
     Indication: PRODUCT USED FOR UNKNOWN INDICATION
     Dosage: (10 MG/40 MG) 1 DOSAGE FORM DAILY
     Route: 048

REACTIONS (14)
  - Hepatocellular injury [Unknown]
  - Acute respiratory distress syndrome [Unknown]
  - Immune reconstitution inflammatory syndrome [Unknown]
  - Lung infection [Unknown]
  - Hypotension [Unknown]
  - Pleural effusion [Unknown]
  - Leukopenia [Recovered/Resolved]
  - Pericardial effusion [Unknown]
  - Chronic kidney disease [Unknown]
  - Cardiogenic shock [Unknown]
  - Thrombocytopenia [Unknown]
  - Toxoplasmosis [Unknown]
  - Eosinophilia [Fatal]
  - Hypersensitivity vasculitis [Unknown]

NARRATIVE: CASE EVENT DATE: 201104
